FAERS Safety Report 21234776 (Version 1)
Quarter: 2022Q3

REPORT INFORMATION
  Report Type: Other
  Country: DE (occurrence: DE)
  Receive Date: 20220820
  Receipt Date: 20220820
  Transmission Date: 20221027
  Serious: Yes (Other)
  Sender: FDA-Public Use
  Company Number: DE-MACLEODS PHARMACEUTICALS US LTD-MAC2022036876

PATIENT

DRUGS (2)
  1. ESCITALOPRAM [Suspect]
     Active Substance: ESCITALOPRAM OXALATE
     Indication: Depression
     Dosage: 10 MILLIGRAM, QD
     Route: 048
     Dates: start: 20210806
  2. ISOTRETINOIN [Suspect]
     Active Substance: ISOTRETINOIN
     Indication: Acne
     Dosage: 20 MILLIGRAM, QD
     Route: 048
     Dates: start: 20210708, end: 20220208

REACTIONS (12)
  - Erectile dysfunction [Recovered/Resolved]
  - Mental impairment [Not Recovered/Not Resolved]
  - Semen liquefaction [Recovered/Resolved]
  - Genital hypoaesthesia [Recovered/Resolved]
  - Disturbance in attention [Not Recovered/Not Resolved]
  - Loss of personal independence in daily activities [Not Recovered/Not Resolved]
  - Premature ejaculation [Recovered/Resolved]
  - Memory impairment [Not Recovered/Not Resolved]
  - Orgasmic sensation decreased [Recovered/Resolved]
  - Diarrhoea [Recovered/Resolved]
  - Libido decreased [Recovered/Resolved]
  - Hyperhidrosis [Recovered/Resolved]

NARRATIVE: CASE EVENT DATE: 20210810
